FAERS Safety Report 9333412 (Version 1)
Quarter: 2013Q2

REPORT INFORMATION
  Report Type: Spontaneous
  Country: US (occurrence: US)
  Receive Date: 20130606
  Receipt Date: 20130606
  Transmission Date: 20140414
  Serious: No
  Sender: FDA-Public Use
  Company Number: US-GLAXOSMITHKLINE-A1007407A

PATIENT
  Age: 64 Year
  Sex: Female

DRUGS (13)
  1. LAMICTAL [Suspect]
     Indication: DEPRESSED MOOD
     Dosage: 25MG TWICE PER DAY
     Route: 048
     Dates: start: 20121219, end: 20130125
  2. UNKNOWN [Suspect]
     Indication: PRODUCT USED FOR UNKNOWN INDICATION
  3. ACETAMINOPHEN [Suspect]
     Indication: PRODUCT USED FOR UNKNOWN INDICATION
  4. CLONAZEPAM [Concomitant]
  5. NEXIUM [Concomitant]
  6. LEVOTHYROXINE [Concomitant]
  7. OCUVITE [Concomitant]
  8. CRESTOR [Concomitant]
  9. MIRALAX [Concomitant]
  10. GLIPIZIDE [Concomitant]
  11. STOOL SOFTENERS [Concomitant]
  12. SYNTHROID [Concomitant]
  13. DIFLUCAN [Concomitant]

REACTIONS (12)
  - Pharyngeal oedema [Recovered/Resolved]
  - Increased appetite [Not Recovered/Not Resolved]
  - Swollen tongue [Recovered/Resolved]
  - Swelling face [Recovered/Resolved]
  - Urticaria [Recovering/Resolving]
  - Oral candidiasis [Unknown]
  - Pyrexia [Unknown]
  - Influenza [Recovered/Resolved]
  - Confusional state [Not Recovered/Not Resolved]
  - Hepatic enzyme increased [Unknown]
  - Drug interaction [Unknown]
  - Oropharyngeal pain [Not Recovered/Not Resolved]
